FAERS Safety Report 10254489 (Version 1)
Quarter: 2014Q2

REPORT INFORMATION
  Report Type: Report from Study
  Country: GB (occurrence: GB)
  Receive Date: 20140624
  Receipt Date: 20140624
  Transmission Date: 20141212
  Serious: Yes (Other)
  Sender: FDA-Public Use
  Company Number: GB-ROCHE-1419962

PATIENT
  Sex: 0

DRUGS (2)
  1. PEG-INTERFERON ALFA 2A [Suspect]
     Indication: CHRONIC HEPATITIS C
     Dosage: 100 MCGM/M2
     Route: 058
  2. RIBAVIRIN [Suspect]
     Indication: CHRONIC HEPATITIS C
     Dosage: 15 MGS/KG/DAY IN 2 DIVIDED DOSES
     Route: 048

REACTIONS (6)
  - Mental disorder [Unknown]
  - Neutropenia [Unknown]
  - Pyrexia [Unknown]
  - Influenza [Unknown]
  - Gastrointestinal disorder [Unknown]
  - Anaemia [Unknown]
